FAERS Safety Report 6154520-2 (Version None)
Quarter: 2009Q2

REPORT INFORMATION
  Report Type: 
  Country: None (occurrence: None)
  Receive Date: 20090410
  Receipt Date: 20090410
  Transmission Date: 20091009
  Serious: No
  Sender: FDA-Public Use
  Company Number: None

PATIENT
  Age: 83 Year
  Sex: Male
  Weight: 93.4 kg

DRUGS (1)
  1. ENOXAPARIN SODIUM [Suspect]
     Indication: ATRIAL FIBRILLATION
     Dosage: 80 MG BID SQ
     Route: 058
     Dates: start: 20090129, end: 20090209

REACTIONS (2)
  - HAEMORRHAGIC TRANSFORMATION STROKE [None]
  - INTRAVENTRICULAR HAEMORRHAGE [None]
